FAERS Safety Report 9416932 (Version 1)
Quarter: 2013Q3

REPORT INFORMATION
  Report Type: Spontaneous
  Country: US (occurrence: None)
  Receive Date: 20130722
  Receipt Date: 20130722
  Transmission Date: 20140515
  Serious: Yes (Hospitalization)
  Sender: FDA-Public Use
  Company Number: QSC-2013-0219

PATIENT
  Age: 41 Year
  Sex: Female

DRUGS (8)
  1. H.P. ACTHAR GEL [Suspect]
     Indication: BEHCET^S SYNDROME
     Dosage: 80 UNITS, BIW
     Dates: start: 2013, end: 20130703
  2. NORTRIPTYLINE (NORTRIPTYLINE) [Concomitant]
  3. OMEPRAZOLE (OMEPRAZOLE) [Concomitant]
  4. SINGULAIR [Concomitant]
  5. NASONEX (MOMETASONE FUROATE) [Concomitant]
  6. MOBIC (MELOXICAM) [Concomitant]
  7. ALBUTEROL (SALBUTAMOL) [Concomitant]
  8. MULTIVITAMIN (VITAMINS NOS) [Concomitant]

REACTIONS (16)
  - Cardiomyopathy [None]
  - Aortic valve incompetence [None]
  - Mitral valve incompetence [None]
  - Cardiac failure congestive [None]
  - Pulmonary hypertension [None]
  - Sinus tachycardia [None]
  - Atelectasis [None]
  - Pleural effusion [None]
  - Dyspnoea [None]
  - Systolic dysfunction [None]
  - Carditis [None]
  - Hypertension [None]
  - Headache [None]
  - Anxiety [None]
  - Leukocytosis [None]
  - Off label use [None]
